FAERS Safety Report 18128143 (Version 1)
Quarter: 2020Q3

REPORT INFORMATION
  Report Type: Spontaneous
  Country: US (occurrence: US)
  Receive Date: 20200806
  Receipt Date: 20200806
  Transmission Date: 20201103
  Serious: Yes (Hospitalization)
  Sender: FDA-Public Use
  Company Number: None

PATIENT
  Age: 77 Year
  Sex: Female

DRUGS (3)
  1. FREESTYLE [Concomitant]
  2. PIQRAY [Suspect]
     Active Substance: ALPELISIB
     Indication: NEOPLASM MALIGNANT
     Route: 048
     Dates: start: 20200711
  3. PROMTHEAZINE [Concomitant]

REACTIONS (5)
  - Skin reaction [None]
  - Urticaria [None]
  - Rash [None]
  - Pyrexia [None]
  - Stomatitis [None]

NARRATIVE: CASE EVENT DATE: 20200724
